FAERS Safety Report 8849811 (Version 1)
Quarter: 2012Q4

REPORT INFORMATION
  Report Type: 
  Country: US (occurrence: US)
  Receive Date: 20121019
  Receipt Date: 20121019
  Transmission Date: 20130627
  Serious: Yes (Hospitalization)
  Sender: FDA-Public Use
  Company Number: US-BAXTER-2012BAX000920

PATIENT
  Sex: Male
  Weight: 81.81 kg

DRUGS (1)
  1. CYCLOPHOSPHAMIDE FOR INJECTION, USP [Suspect]
     Indication: MULTIPLE MYELOMA
     Route: 042
     Dates: start: 20111219, end: 20120213

REACTIONS (1)
  - Deep vein thrombosis [Recovered/Resolved]
